FAERS Safety Report 5219878-7 (Version None)
Quarter: 2007Q1

REPORT INFORMATION
  Report Type: 
  Country: None (occurrence: None)
  Receive Date: 20070125
  Receipt Date: 20070117
  Transmission Date: 20070707
  Serious: Yes (Other)
  Sender: FDA-Public Use
  Company Number: US-PFIZER INC-2007005014

PATIENT

DRUGS (1)
  1. NEURONTIN [Suspect]

REACTIONS (1)
  - SYSTEMIC LUPUS ERYTHEMATOSUS [None]
